FAERS Safety Report 13504402 (Version 1)
Quarter: 2017Q2

REPORT INFORMATION
  Report Type: Spontaneous
  Country: US (occurrence: US)
  Receive Date: 20170502
  Receipt Date: 20170502
  Transmission Date: 20170830
  Serious: No
  Sender: FDA-Public Use
  Company Number: US-ASTRAZENECA-1999UW02002

PATIENT
  Age: 19639 Day
  Sex: Female
  Weight: 106.6 kg

DRUGS (11)
  1. BYDUREON [Suspect]
     Active Substance: EXENATIDE
     Indication: TYPE 2 DIABETES MELLITUS
     Route: 058
  2. LOSTATIN [Concomitant]
     Indication: BLOOD PRESSURE ABNORMAL
  3. METOPROLOL SUCCINATE. [Concomitant]
     Active Substance: METOPROLOL SUCCINATE
     Indication: HYPERTENSION
     Route: 048
  4. CALCIUM [Concomitant]
     Active Substance: CALCIUM
  5. VITAMINS NOS [Concomitant]
     Active Substance: VITAMINS
     Indication: ARTHRITIS
  6. KLOR-CON [Concomitant]
     Active Substance: POTASSIUM CHLORIDE
     Dates: start: 199808, end: 19990414
  7. MERIDIA [Interacting]
     Active Substance: SIBUTRAMINE HYDROCHLORIDE
     Indication: WEIGHT DECREASED
     Route: 048
     Dates: start: 19990410
  8. ZESTRIL [Interacting]
     Active Substance: LISINOPRIL
     Indication: HYPERTENSION
     Route: 048
     Dates: start: 199804
  9. CELEBREX [Suspect]
     Active Substance: CELECOXIB
     Route: 048
     Dates: start: 19990408
  10. HYDROCHLOROTHIAZIDE. [Concomitant]
     Active Substance: HYDROCHLOROTHIAZIDE
  11. METFORMIN [Concomitant]
     Active Substance: METFORMIN HYDROCHLORIDE
     Indication: DIABETES MELLITUS

REACTIONS (6)
  - Drug interaction [Unknown]
  - Heart rate increased [Not Recovered/Not Resolved]
  - Appetite disorder [Recovered/Resolved]
  - Constipation [Not Recovered/Not Resolved]
  - Injection site pain [Unknown]
  - Hepatomegaly [Not Recovered/Not Resolved]

NARRATIVE: CASE EVENT DATE: 19990413
